FAERS Safety Report 22113679 (Version 1)
Quarter: 2023Q1

REPORT INFORMATION
  Report Type: Spontaneous
  Country: JP (occurrence: JP)
  Receive Date: 20230320
  Receipt Date: 20230320
  Transmission Date: 20230418
  Serious: Yes (Death)
  Sender: FDA-Public Use
  Company Number: JP-CHUGAI-2023008922

PATIENT
  Age: 7 Decade

DRUGS (4)
  1. GAZYVA [Suspect]
     Active Substance: OBINUTUZUMAB
     Indication: Follicular lymphoma
     Dosage: ONCE/3WEEKS
     Route: 041
     Dates: start: 20200311, end: 20220309
  2. GAZYVA [Suspect]
     Active Substance: OBINUTUZUMAB
     Route: 041
  3. GAZYVA [Suspect]
     Active Substance: OBINUTUZUMAB
     Route: 041
  4. BENDAMUSTINE HYDROCHLORIDE [Suspect]
     Active Substance: BENDAMUSTINE HYDROCHLORIDE
     Indication: Follicular lymphoma
     Dosage: ONCE/3WEEKS
     Route: 041
     Dates: start: 20200311, end: 20220309

REACTIONS (1)
  - COVID-19 [Fatal]

NARRATIVE: CASE EVENT DATE: 20230101
